FAERS Safety Report 7312486-3 (Version None)
Quarter: 2011Q1

REPORT INFORMATION
  Report Type: 
  Country: None (occurrence: None)
  Receive Date: 20110214
  Receipt Date: 20110128
  Transmission Date: 20110831
  Serious: Yes (Other)
  Sender: FDA-Public Use
  Company Number: AUR-APL-2011-00325

PATIENT
  Age: 38 Year
  Sex: Female
  Weight: 81 kg

DRUGS (5)
  1. IBUPROFEN [Concomitant]
  2. LANSOPRAZOLE [Concomitant]
  3. DIHYDROCODEINE BITARTRATE INJ [Concomitant]
  4. PARACETAMOL [Concomitant]
  5. MELOXICAM [Suspect]
     Indication: RHEUMATOID ARTHRITIS
     Dosage: 15MG-ORAL
     Route: 048
     Dates: start: 20101116, end: 20101220

REACTIONS (9)
  - DRUG HYPERSENSITIVITY [None]
  - HEADACHE [None]
  - APHASIA [None]
  - PARAESTHESIA [None]
  - PARALYSIS [None]
  - PAIN IN EXTREMITY [None]
  - TINNITUS [None]
  - WAXY FLEXIBILITY [None]
  - PAIN [None]
